FAERS Safety Report 9733064 (Version 2)
Quarter: 2013Q4

REPORT INFORMATION
  Report Type: Report from Study
  Country: US (occurrence: US)
  Receive Date: 20131204
  Receipt Date: 20131212
  Transmission Date: 20140711
  Serious: Yes (Hospitalization, Other)
  Sender: FDA-Public Use
  Company Number: US-ABBVIE-13P-163-1173659-00

PATIENT
  Age: 23 Year
  Sex: Male
  Weight: 68.1 kg

DRUGS (5)
  1. HUMIRA [Suspect]
     Indication: CROHN^S DISEASE
     Dates: start: 20131112, end: 20131112
  2. HUMIRA [Suspect]
  3. METRONIDAZOLE [Concomitant]
     Indication: PROPHYLAXIS
  4. MAGNESIUM [Concomitant]
     Indication: MAGNESIUM DEFICIENCY
  5. TORADOL [Concomitant]
     Indication: PAIN

REACTIONS (11)
  - Intestinal obstruction [Not Recovered/Not Resolved]
  - Gastrointestinal inflammation [Not Recovered/Not Resolved]
  - Gastrointestinal ulcer [Not Recovered/Not Resolved]
  - Intestinal perforation [Unknown]
  - Fistula [Unknown]
  - Abscess intestinal [Not Recovered/Not Resolved]
  - Blood albumin decreased [Unknown]
  - Blood calcium decreased [Unknown]
  - Blood potassium decreased [Unknown]
  - Haemoglobin decreased [Unknown]
  - Blood phosphorus decreased [Unknown]
